FAERS Safety Report 7686627-2 (Version None)
Quarter: 2011Q3

REPORT INFORMATION
  Report Type: 
  Country: None (occurrence: None)
  Receive Date: 20110816
  Receipt Date: 20110816
  Transmission Date: 20111222
  Serious: Yes (Disabling)
  Sender: FDA-Public Use
  Company Number: None

PATIENT
  Age: 60 Year
  Sex: Male
  Weight: 58.967 kg

DRUGS (2)
  1. ORENCIA [Suspect]
     Indication: RHEUMATOID ARTHRITIS
     Dosage: REMICADE
     Route: 041
     Dates: start: 20100114, end: 20101224
  2. REMICADE [Concomitant]
     Dosage: ORENCIA
     Route: 041
     Dates: start: 20110131, end: 20110829

REACTIONS (5)
  - HYPOAESTHESIA [None]
  - DYSSTASIA [None]
  - NERVE INJURY [None]
  - GAIT DISTURBANCE [None]
  - BALANCE DISORDER [None]
